FAERS Safety Report 23735325 (Version 1)
Quarter: 2024Q2

REPORT INFORMATION
  Report Type: Spontaneous
  Country: US (occurrence: US)
  Receive Date: 20240412
  Receipt Date: 20240412
  Transmission Date: 20240716
  Serious: No
  Sender: FDA-Public Use
  Company Number: US-CORCEPT THERAPEUTICS INC.-US-2023CRT000909

PATIENT
  Age: 39 Year
  Sex: Female

DRUGS (3)
  1. KORLYM [Suspect]
     Active Substance: MIFEPRISTONE
     Indication: Product used for unknown indication
     Dosage: 300 MG, QD
     Route: 048
  2. AMILORIDE [Concomitant]
     Active Substance: AMILORIDE
     Indication: Fluid retention
  3. HUMULIN R [Concomitant]
     Active Substance: INSULIN HUMAN
     Indication: Product used for unknown indication
     Dosage: U500, 100-200 UNITS PER DAY

REACTIONS (3)
  - Premature menopause [Unknown]
  - Blood follicle stimulating hormone decreased [Unknown]
  - Fluid retention [Unknown]

NARRATIVE: CASE EVENT DATE: 20220901
